FAERS Safety Report 24351360 (Version 1)
Quarter: 2024Q3

REPORT INFORMATION
  Report Type: Report from Study
  Country: BG (occurrence: BG)
  Receive Date: 20240923
  Receipt Date: 20240923
  Transmission Date: 20241016
  Serious: No
  Sender: ROCHE
  Company Number: BG-ROCHE-2027217

PATIENT
  Age: 48 Year
  Sex: Female
  Weight: 55.0 kg

DRUGS (10)
  1. HERCEPTIN [Suspect]
     Active Substance: TRASTUZUMAB
     Indication: HER2 positive breast cancer
     Route: 041
     Dates: start: 20170802
  2. PERJETA [Suspect]
     Active Substance: PERTUZUMAB
     Indication: HER2 positive breast cancer
     Route: 042
     Dates: start: 20170802
  3. TAXOTERE [Suspect]
     Active Substance: DOCETAXEL
     Indication: HER2 positive breast cancer
     Route: 042
     Dates: start: 20170802
  4. ARIMIDEX [Concomitant]
     Active Substance: ANASTROZOLE
     Route: 048
     Dates: start: 20180703
  5. METAMIZOLE [Concomitant]
     Active Substance: METAMIZOLE
     Indication: Brain neoplasm
     Route: 030
     Dates: start: 20200430, end: 20200526
  6. MANNITOL [Concomitant]
     Active Substance: MANNITOL
     Indication: Brain neoplasm
     Route: 042
     Dates: start: 20200430, end: 20200526
  7. DEXAMETHASONE [Concomitant]
     Active Substance: DEXAMETHASONE
     Indication: Brain neoplasm
     Route: 030
     Dates: start: 20200430, end: 20200526
  8. FAMOTIDINE [Concomitant]
     Active Substance: FAMOTIDINE
     Indication: Brain neoplasm
     Route: 042
     Dates: start: 20200430, end: 20200526
  9. VALPROATE SODIUM [Concomitant]
     Active Substance: VALPROATE SODIUM
     Indication: Brain neoplasm
     Route: 048
     Dates: start: 20200430
  10. CEFUROXIME [Concomitant]
     Active Substance: CEFUROXIME
     Indication: Brain neoplasm
     Route: 042
     Dates: start: 20200430, end: 20200526

REACTIONS (1)
  - Rash [Recovered/Resolved]

NARRATIVE: CASE EVENT DATE: 20170904
